FAERS Safety Report 9643324 (Version 2)
Quarter: 2014Q1

REPORT INFORMATION
  Report Type: Spontaneous
  Country: US (occurrence: None)
  Receive Date: 20131022
  Receipt Date: 20140328
  Transmission Date: 20141002
  Serious: Yes (Other)
  Sender: FDA-Public Use
  Company Number: JPI-P-030677

PATIENT
  Age: 53 Year
  Sex: Female

DRUGS (1)
  1. XYREM [Suspect]
     Indication: NARCOLEPSY
     Route: 048
     Dates: start: 20100618, end: 201007

REACTIONS (6)
  - Fall [None]
  - Lower limb fracture [None]
  - Knee operation [None]
  - Clavicle fracture [None]
  - Tendon operation [None]
  - Bone operation [None]
